FAERS Safety Report 24293165 (Version 1)
Quarter: 2024Q3

REPORT INFORMATION
  Report Type: Spontaneous
  Country: US (occurrence: None)
  Receive Date: 20240906
  Receipt Date: 20240906
  Transmission Date: 20241016
  Serious: No
  Sender: DOMPE FARMACEUTICI
  Company Number: US-FARMAPROD-202308-202312-3579

PATIENT
  Sex: Female
  Weight: 45.99 kg

DRUGS (13)
  1. OXERVATE [Suspect]
     Active Substance: CENEGERMIN-BKBJ
     Indication: Neurotrophic keratopathy
     Route: 047
     Dates: start: 20231121
  2. HERBALS\TURMERIC [Concomitant]
     Active Substance: HERBALS\TURMERIC
  3. VITAMINS [Concomitant]
     Active Substance: VITAMINS
  4. ESTRACE [Concomitant]
     Active Substance: ESTRADIOL
  5. ALBUTEROL SULFATE [Concomitant]
     Active Substance: ALBUTEROL SULFATE
     Dosage: HYDROFLUOROALKANE, AERSOLO WITH ADAPTER
  6. PANTOPRAZOLE SODIUM [Concomitant]
     Active Substance: PANTOPRAZOLE SODIUM
  7. HYDROXYCHLOROQUINE SULFATE [Concomitant]
     Active Substance: HYDROXYCHLOROQUINE SULFATE
  8. MEDROXYPROGESTERONE ACETATE [Concomitant]
     Active Substance: MEDROXYPROGESTERONE ACETATE
  9. ASPIRIN [Concomitant]
     Active Substance: ASPIRIN
  10. LYSINE [Concomitant]
     Active Substance: LYSINE
  11. GINGER [Concomitant]
     Active Substance: GINGER
  12. ATROPINE\DIPHENOXYLATE [Concomitant]
     Active Substance: ATROPINE\DIPHENOXYLATE
     Dosage: 2.5-.025MG
  13. LIDOCAINE [Concomitant]
     Active Substance: LIDOCAINE
     Dosage: 5% ADHESIVE PATCH

REACTIONS (1)
  - Product use complaint [Unknown]
